FAERS Safety Report 25305160 (Version 1)
Quarter: 2025Q2

REPORT INFORMATION
  Report Type: Spontaneous
  Country: KR (occurrence: KR)
  Receive Date: 20250513
  Receipt Date: 20250513
  Transmission Date: 20250716
  Serious: Yes (Life-Threatening, Hospitalization, Other)
  Sender: RECORDATI
  Company Number: KR-EUSA PHARMA (UK) LIMITED-2021KR000023

PATIENT

DRUGS (2)
  1. SYLVANT [Suspect]
     Active Substance: SILTUXIMAB
     Indication: Castleman^s disease
     Route: 042
     Dates: start: 202101, end: 2021
  2. SYLVANT [Suspect]
     Active Substance: SILTUXIMAB
     Route: 042
     Dates: start: 2021

REACTIONS (5)
  - Multiple organ dysfunction syndrome [Unknown]
  - Sepsis [Unknown]
  - Critical illness [Unknown]
  - Pyrexia [Unknown]
  - Condition aggravated [Unknown]

NARRATIVE: CASE EVENT DATE: 20210101
